FAERS Safety Report 25144499 (Version 1)
Quarter: 2025Q2

REPORT INFORMATION
  Report Type: Spontaneous
  Country: US (occurrence: US)
  Receive Date: 20250401
  Receipt Date: 20250401
  Transmission Date: 20250716
  Serious: Yes (Other)
  Sender: BAYER
  Company Number: US-BAYER-2025A042792

PATIENT
  Age: 56 Year
  Sex: Male

DRUGS (2)
  1. ASPIRIN [Suspect]
     Active Substance: ASPIRIN
  2. METOPROLOL [Concomitant]
     Active Substance: METOPROLOL

REACTIONS (1)
  - Arterial intramural haematoma [None]
